FAERS Safety Report 4495096-5 (Version None)
Quarter: 2004Q4

REPORT INFORMATION
  Report Type: 
  Country: None (occurrence: None)
  Receive Date: 20041105
  Receipt Date: 20041105
  Transmission Date: 20050328
  Serious: Yes (Hospitalization)
  Sender: FDA-Public Use
  Company Number: None

PATIENT
  Age: 57 Year
  Sex: Male
  Weight: 104.3273 kg

DRUGS (3)
  1. LISINOPRIL [Suspect]
     Indication: HYPERTENSION
     Dosage: 80MG   QD    ORAL
     Route: 048
     Dates: start: 20020522, end: 20030221
  2. LISINOPRIL [Suspect]
     Indication: PROPHYLAXIS
     Dosage: 80MG   QD    ORAL
     Route: 048
     Dates: start: 20020522, end: 20030221
  3. LISINOPRIL [Suspect]
     Indication: RENAL DISORDER
     Dosage: 80MG   QD    ORAL
     Route: 048
     Dates: start: 20020522, end: 20030221

REACTIONS (2)
  - RENAL FAILURE ACUTE [None]
  - SYNCOPE [None]
